FAERS Safety Report 8339295-0 (Version None)
Quarter: 2012Q2

REPORT INFORMATION
  Report Type: 
  Country: None (occurrence: None)
  Receive Date: 20120502
  Receipt Date: 20120424
  Transmission Date: 20120825
  Serious: Yes (Hospitalization)
  Sender: FDA-Public Use
  Company Number: DKLU1079077

PATIENT
  Age: 20 Year
  Sex: Male

DRUGS (12)
  1. ONFI [Suspect]
     Indication: INTENTIONAL OVERDOSE
     Dosage: 150 MILLIGRAM(S), ORAL
     Route: 048
     Dates: start: 20120215, end: 20120215
  2. IBUPROFEN [Suspect]
     Indication: INTENTIONAL OVERDOSE
     Dosage: 8 G GRAM(S), ORAL
     Route: 048
     Dates: start: 20120215, end: 20120215
  3. SPASFON (SPASFON /00765801/) (1.6 G) [Suspect]
     Indication: INTENTIONAL OVERDOSE
     Dosage: 1.6 G GRAM(S), ORAL
     Route: 048
     Dates: start: 20120215, end: 20120215
  4. MEBEVERINE (MEBEVERINE) [Suspect]
     Indication: INTENTIONAL OVERDOSE
     Dosage: 3.6 G  GRAM(S), ORAL
     Route: 048
     Dates: start: 20120215, end: 20120215
  5. ACETAMINOPHEN [Suspect]
     Indication: INTENTIONAL OVERDOSE
     Dosage: 23 G GRAM(S), ORAL
     Route: 048
     Dates: start: 20120215, end: 20120215
  6. MAXILASE (ALPHA-AMYLASE SWINE PANCREAS) (2 G) [Suspect]
     Indication: INTENTIONAL OVERDOSE
     Dosage: 2 G GRAM(S), ORAL
     Route: 048
     Dates: start: 20120215, end: 20120215
  7. TEGRETOL [Suspect]
     Indication: EPILEPSY
     Dosage: 400 MG MILLIGRAM(S), 2 IN 1 D, ORAL; 10 G GRAM(S), ORAL
     Route: 048
     Dates: start: 20120215, end: 20120215
  8. TEGRETOL [Suspect]
     Indication: INTENTIONAL OVERDOSE
     Dosage: 400 MG MILLIGRAM(S), 2 IN 1 D, ORAL; 10 G GRAM(S), ORAL
     Route: 048
     Dates: start: 20120215, end: 20120215
  9. ASPIRIN [Suspect]
     Indication: INTENTIONAL OVERDOSE
     Dosage: 1 G GRAM(S), ORAL
     Route: 048
     Dates: start: 20120215, end: 20120215
  10. ACETYLCYSTEINE [Suspect]
     Indication: INTENTIONAL OVERDOSE
     Dosage: 1.4 G GRAM(S), ORAL
     Route: 048
     Dates: start: 20120215, end: 20120215
  11. LAMOTRIGINE [Suspect]
     Indication: EPILEPSY
     Dosage: 75 MG MILLIGRAM(S), 2 IN 1 D , ORAL; 1 G GRAM(S), ORAL
     Route: 048
     Dates: start: 20120215, end: 20120215
  12. LAMOTRIGINE [Suspect]
     Indication: INTENTIONAL OVERDOSE
     Dosage: 75 MG MILLIGRAM(S), 2 IN 1 D , ORAL; 1 G GRAM(S), ORAL
     Route: 048
     Dates: start: 20120215, end: 20120215

REACTIONS (10)
  - ELECTROCARDIOGRAM QRS COMPLEX PROLONGED [None]
  - COMA [None]
  - CONFUSIONAL STATE [None]
  - AGITATION [None]
  - SUICIDAL IDEATION [None]
  - VOMITING [None]
  - POISONING DELIBERATE [None]
  - MULTIPLE DRUG OVERDOSE INTENTIONAL [None]
  - HYPERLACTACIDAEMIA [None]
  - MAJOR DEPRESSION [None]
